FAERS Safety Report 5086657-3 (Version None)
Quarter: 2006Q3

REPORT INFORMATION
  Report Type: 
  Country: None (occurrence: None)
  Receive Date: 20060823
  Receipt Date: 20050829
  Transmission Date: 20061208
  Serious: No
  Sender: FDA-Public Use
  Company Number: US-GLAXOSMITHKLINE-A0572224A

PATIENT
  Sex: Female

DRUGS (6)
  1. MALARONE [Suspect]
     Route: 048
     Dates: start: 20050701, end: 20050801
  2. MEPRON [Suspect]
     Dosage: 5ML TWICE PER DAY
     Route: 048
     Dates: start: 20050801
  3. CLARITHROMYCIN [Concomitant]
  4. LIPITOR [Concomitant]
  5. SYNTHROID [Concomitant]
  6. CELEBREX [Concomitant]

REACTIONS (5)
  - ASTHENIA [None]
  - FATIGUE [None]
  - FORMICATION [None]
  - PYREXIA [None]
  - SENSORY DISTURBANCE [None]
